FAERS Safety Report 5626732-5 (Version None)
Quarter: 2008Q1

REPORT INFORMATION
  Report Type: 
  Country: None (occurrence: None)
  Receive Date: 20080214
  Receipt Date: 20080213
  Transmission Date: 20080703
  Serious: Yes (Death)
  Sender: FDA-Public Use
  Company Number: US-WYE-H02606208

PATIENT
  Sex: Female

DRUGS (16)
  1. SIROLIMUS [Suspect]
     Indication: PROPHYLAXIS AGAINST TRANSPLANT REJECTION
     Route: 048
     Dates: start: 20060601, end: 20060601
  2. SIROLIMUS [Suspect]
     Route: 048
     Dates: start: 20060602, end: 20060810
  3. SIROLIMUS [Suspect]
     Route: 048
     Dates: start: 20060811, end: 20060903
  4. PREDNISONE TAB [Suspect]
     Indication: PROPHYLAXIS AGAINST TRANSPLANT REJECTION
     Route: 048
     Dates: start: 20060507, end: 20060628
  5. PREDNISONE TAB [Suspect]
     Route: 048
     Dates: start: 20060629
  6. BACTRIM [Concomitant]
     Dosage: NOT PROVIDED
     Route: 065
     Dates: start: 20060511, end: 20060903
  7. NISTATIN [Concomitant]
     Dosage: NOT PROVIDED
     Route: 065
     Dates: start: 20060502
  8. PEPCID [Concomitant]
     Dosage: NOT PROVIDED
     Route: 065
     Dates: start: 20060503, end: 20060903
  9. PROCRIT [Concomitant]
     Dosage: NOT PROVIDED
     Route: 065
     Dates: start: 20060712, end: 20060712
  10. FOLIC ACID [Concomitant]
     Dosage: NOT PROVIDED
     Route: 065
     Dates: start: 20060823, end: 20060903
  11. FERROUS SULFATE TAB [Concomitant]
     Dosage: NOT PROVIDED
     Route: 065
     Dates: start: 20060823, end: 20060903
  12. ZELNORM [Concomitant]
     Dosage: NOT PROVIDED
     Route: 065
     Dates: start: 20060816, end: 20060903
  13. MYCOPHENOLATE MOFETIL [Suspect]
     Indication: PROPHYLAXIS AGAINST TRANSPLANT REJECTION
     Route: 048
     Dates: start: 20060501, end: 20060723
  14. MYCOPHENOLATE MOFETIL [Suspect]
     Route: 048
     Dates: start: 20060724, end: 20060805
  15. MYCOPHENOLATE MOFETIL [Suspect]
     Dosage: NOT PROVIDED
     Route: 048
     Dates: start: 20060816, end: 20060903
  16. ASCORBIC ACID/ERGOCALCIFEROL/FOLIC ACID/NICOTINAMIDE/PANTHENOL/RETINOL [Concomitant]
     Dosage: NOT PROVIDED
     Route: 065
     Dates: start: 20060729, end: 20060903

REACTIONS (1)
  - DEATH [None]
